FAERS Safety Report 23516118 (Version 1)
Quarter: 2024Q1

REPORT INFORMATION
  Report Type: 
  Country: None (occurrence: None)
  Receive Date: 20240213
  Receipt Date: 20240213
  Transmission Date: 20240410
  Serious: No
  Sender: FDA-Public Use
  Company Number: ES-ROCHE-3473843

PATIENT
  Weight: 67.4 kg

DRUGS (41)
  1. ATEZOLIZUMAB [Suspect]
     Active Substance: ATEZOLIZUMAB
     Dates: start: 20230804
  2. GIREDESTRANT [Suspect]
     Active Substance: GIREDESTRANT
     Dosage: ON 20/NOV/2023, SHE RECEIVED MOST MOST RECENT DOSE (30 MG) OF GIREDESTRANT PRIOR TO AE
     Dates: start: 20230804
  3. ALPRAZOLAM [Concomitant]
     Active Substance: ALPRAZOLAM
     Dates: start: 2000
  4. ALPRAZOLAM [Concomitant]
     Active Substance: ALPRAZOLAM
     Dates: start: 20231106, end: 20231108
  5. CYANOCOBALAMIN [Concomitant]
     Active Substance: CYANOCOBALAMIN
     Dates: start: 20230424
  6. FOLIC ACID [Concomitant]
     Active Substance: FOLIC ACID
     Dates: start: 20230424
  7. FOLIC ACID [Concomitant]
     Active Substance: FOLIC ACID
     Dates: start: 20231215, end: 20231222
  8. LORMETAZEPAM [Concomitant]
     Active Substance: LORMETAZEPAM
     Dates: start: 202207
  9. OLANZAPINE [Concomitant]
     Active Substance: OLANZAPINE
     Dates: start: 202207
  10. OLANZAPINE [Concomitant]
     Active Substance: OLANZAPINE
     Dates: start: 20231106, end: 20231108
  11. OLANZAPINE [Concomitant]
     Active Substance: OLANZAPINE
     Dates: start: 20231220, end: 20231221
  12. PAROXETINE [Concomitant]
     Active Substance: PAROXETINE
     Dates: start: 202207
  13. DEXAMETHASONE [Concomitant]
     Active Substance: DEXAMETHASONE
     Dates: start: 20231031, end: 20231108
  14. DEXAMETHASONE [Concomitant]
     Active Substance: DEXAMETHASONE
     Dates: start: 20231108, end: 20231109
  15. DEXAMETHASONE [Concomitant]
     Active Substance: DEXAMETHASONE
     Dates: start: 20231107, end: 20231107
  16. ASPIRIN [Concomitant]
     Active Substance: ASPIRIN
     Dates: start: 20231108, end: 20231108
  17. ASPIRIN [Concomitant]
     Active Substance: ASPIRIN
     Dates: start: 20231120, end: 20231204
  18. ASPIRIN [Concomitant]
     Active Substance: ASPIRIN
     Dates: start: 20231216, end: 20231221
  19. ATORVASTATIN [Concomitant]
     Active Substance: ATORVASTATIN
     Dates: start: 20231108, end: 20231108
  20. ATORVASTATIN [Concomitant]
     Active Substance: ATORVASTATIN
     Dates: start: 20231120, end: 20231204
  21. ATORVASTATIN [Concomitant]
     Active Substance: ATORVASTATIN
     Dates: start: 20231215, end: 20231221
  22. LORAZEPAM [Concomitant]
     Active Substance: LORAZEPAM
     Dates: start: 20231106, end: 20231108
  23. OMEPRAZOLE [Concomitant]
     Active Substance: OMEPRAZOLE
     Dates: start: 20231107, end: 20231109
  24. HALOPERIDOL [Concomitant]
     Active Substance: HALOPERIDOL
     Dates: start: 20231108, end: 20231108
  25. IBUPROFEN [Concomitant]
     Active Substance: IBUPROFEN
     Dates: start: 20230915
  26. MEROPENEM [Concomitant]
     Active Substance: MEROPENEM
     Dates: start: 20231215, end: 20231215
  27. MEROPENEM [Concomitant]
     Active Substance: MEROPENEM
     Dates: start: 20231216, end: 20231219
  28. MEROPENEM [Concomitant]
     Active Substance: MEROPENEM
     Dates: start: 20231220, end: 20231220
  29. METHYLPREDNISOLONE [Concomitant]
     Active Substance: METHYLPREDNISOLONE
     Dates: start: 20231215, end: 20231215
  30. METHYLPREDNISOLONE [Concomitant]
     Active Substance: METHYLPREDNISOLONE
     Dates: start: 20231216, end: 20231219
  31. METHYLPREDNISOLONE [Concomitant]
     Active Substance: METHYLPREDNISOLONE
     Dates: start: 20231220, end: 20231222
  32. ACETAMINOPHEN [Concomitant]
     Active Substance: ACETAMINOPHEN
     Dates: start: 20231215, end: 20231215
  33. ACETAMINOPHEN [Concomitant]
     Active Substance: ACETAMINOPHEN
     Dates: start: 20231216, end: 20231217
  34. ACETAMINOPHEN [Concomitant]
     Active Substance: ACETAMINOPHEN
     Dates: start: 20231218, end: 20231218
  35. ACETAMINOPHEN [Concomitant]
     Active Substance: ACETAMINOPHEN
     Dates: start: 20231219, end: 20231219
  36. ACETAMINOPHEN [Concomitant]
     Active Substance: ACETAMINOPHEN
     Dates: start: 20231220, end: 20231220
  37. AMOXICILLIN [Concomitant]
     Active Substance: AMOXICILLIN
     Dates: start: 20231215, end: 20231215
  38. BUDESONIDE [Concomitant]
     Active Substance: BUDESONIDE
     Dates: start: 20231215, end: 20231221
  39. IPRATROPIUM [Concomitant]
     Active Substance: IPRATROPIUM
     Dates: start: 20231215, end: 20231215
  40. IPRATROPIUM [Concomitant]
     Active Substance: IPRATROPIUM
     Dates: start: 20231216, end: 20231221
  41. IPRATROPIUM [Concomitant]
     Active Substance: IPRATROPIUM
     Dates: start: 20231222, end: 20231222

REACTIONS (1)
  - Anxiety [None]

NARRATIVE: CASE EVENT DATE: 20231207
